FAERS Safety Report 9369360 (Version 1)
Quarter: 2013Q2

REPORT INFORMATION
  Report Type: Spontaneous
  Country: US (occurrence: None)
  Receive Date: 20130625
  Receipt Date: 20130625
  Transmission Date: 20140414
  Serious: Yes (Other)
  Sender: FDA-Public Use
  Company Number: None

PATIENT
  Age: 82 Year
  Sex: Female
  Weight: 135 kg

DRUGS (2)
  1. TERIPARATIDE FORTEO [Suspect]
     Indication: OSTEOPOROSIS
     Route: 058
     Dates: start: 20130508
  2. TERIPARATIDE FORTEO [Suspect]
     Indication: FRACTURE
     Route: 058
     Dates: start: 20130508

REACTIONS (24)
  - Headache [None]
  - Vision blurred [None]
  - Abnormal sensation in eye [None]
  - Swelling [None]
  - Erythema [None]
  - Trigger finger [None]
  - Infected bites [None]
  - Back pain [None]
  - Hypoaesthesia [None]
  - Pruritus [None]
  - Musculoskeletal pain [None]
  - Arthropathy [None]
  - Gait disturbance [None]
  - Erythema [None]
  - Pruritus [None]
  - Pruritus [None]
  - Injection site erythema [None]
  - Genital erythema [None]
  - Pharyngeal erythema [None]
  - Musculoskeletal pain [None]
  - Muscle tightness [None]
  - Pruritus [None]
  - Pain [None]
  - Lethargy [None]
